FAERS Safety Report 4582604-9 (Version None)
Quarter: 2005Q1

REPORT INFORMATION
  Report Type: 
  Country: None (occurrence: None)
  Receive Date: 20050215
  Receipt Date: 20041112
  Transmission Date: 20050727
  Serious: Yes (Hospitalization, Disabling, Other)
  Sender: FDA-Public Use
  Company Number: PHNU2004DE03842

PATIENT
  Sex: Female

DRUGS (1)
  1. TEGRETOL [Suspect]
     Route: 065

REACTIONS (1)
  - GLOMERULONEPHRITIS [None]
